FAERS Safety Report 4953683-1 (Version None)
Quarter: 2006Q1

REPORT INFORMATION
  Report Type: 
  Country: None (occurrence: None)
  Receive Date: 20060324
  Receipt Date: 20050926
  Transmission Date: 20060701
  Serious: Yes (Hospitalization, Disabling)
  Sender: FDA-Public Use
  Company Number: US-MERCK-0509USA03892

PATIENT
  Age: 54 Year
  Sex: Female
  Weight: 90 kg

DRUGS (3)
  1. VIOXX [Suspect]
     Indication: OSTEOARTHRITIS
     Route: 048
     Dates: start: 20000601, end: 20040930
  2. VIOXX [Suspect]
     Route: 048
     Dates: start: 20000601, end: 20040930
  3. TYLENOL [Concomitant]
     Route: 065

REACTIONS (11)
  - ACUTE SINUSITIS [None]
  - ANORECTAL DISORDER [None]
  - ANXIETY [None]
  - BLADDER DISORDER [None]
  - BRONCHITIS [None]
  - CHEST PAIN [None]
  - DEPRESSION [None]
  - MUSCULOSKELETAL CHEST PAIN [None]
  - MYOCARDIAL INFARCTION [None]
  - POLYTRAUMATISM [None]
  - THROMBOPHLEBITIS SUPERFICIAL [None]
